FAERS Safety Report 7473324-1 (Version None)
Quarter: 2011Q2

REPORT INFORMATION
  Report Type: 
  Country: None (occurrence: None)
  Receive Date: 20110511
  Receipt Date: 20110428
  Transmission Date: 20111010
  Serious: Yes (Hospitalization, Other)
  Sender: FDA-Public Use
  Company Number: ZA-CELGENEUS-143-50794-11021476

PATIENT
  Sex: Male
  Weight: 90 kg

DRUGS (9)
  1. VIDAZA [Suspect]
     Dosage: 150 MILLIGRAM
     Route: 058
     Dates: start: 20110207, end: 20110210
  2. ANTIBIOTICS [Suspect]
     Indication: NEUTROPENIC SEPSIS
     Route: 065
  3. CARLOC [Concomitant]
     Indication: HYPERTENSION
     Route: 065
  4. LEVOFLOXACIN [Concomitant]
     Indication: NEUTROPENIC SEPSIS
     Route: 065
  5. CLOXACILLIN SODIUM [Concomitant]
     Indication: NEUTROPENIC SEPSIS
     Route: 065
  6. SPIRACTIN [Concomitant]
     Route: 065
  7. CYCLOKAPRON [Concomitant]
     Indication: THROMBOCYTOPENIA
     Dosage: 1500 MILLIGRAM
     Route: 065
     Dates: start: 20110207
  8. SIMVASTATIN [Concomitant]
     Route: 065
  9. BLOOD CELL CONCENTRATE [Concomitant]
     Route: 065

REACTIONS (7)
  - MYOCARDIAL ISCHAEMIA [None]
  - FEBRILE NEUTROPENIA [None]
  - ASTHENIA [None]
  - DYSPNOEA [None]
  - NEUTROPENIC SEPSIS [None]
  - PANCYTOPENIA [None]
  - HYPOTENSION [None]
